FAERS Safety Report 7893571 (Version 6)
Quarter: 2013Q1

REPORT INFORMATION
  Report Type: Spontaneous
  Country: US (occurrence: US)
  Receive Date: 20110411
  Receipt Date: 20130313
  Transmission Date: 20140127
  Serious: Yes (Hospitalization, Other)
  Sender: FDA-Public Use
  Company Number: US-US-EMD SERONO, INC.-7052165

PATIENT
  Age: 23 Year
  Sex: Male
  Weight: 54 kg

DRUGS (6)
  1. REBIF [Suspect]
     Indication: MULTIPLE SCLEROSIS
     Route: 058
     Dates: start: 200707, end: 201210
  2. REBIF [Suspect]
     Route: 058
     Dates: start: 201211
  3. IBUPROFEN [Concomitant]
     Indication: PREMEDICATION
  4. TYLENOL [Concomitant]
     Indication: PREMEDICATION
  5. CANNABIS SATIVA SUBSP. INDICA TOP [Concomitant]
     Indication: PRODUCT USED FOR UNKNOWN INDICATION
  6. OXYCODONE [Concomitant]
     Indication: PRODUCT USED FOR UNKNOWN INDICATION

REACTIONS (8)
  - Grand mal convulsion [Unknown]
  - Epilepsy [Unknown]
  - Multiple sclerosis relapse [Not Recovered/Not Resolved]
  - Night sweats [Unknown]
  - Memory impairment [Unknown]
  - Anger [Unknown]
  - Depressed mood [Unknown]
  - Injection site bruising [Unknown]
